FAERS Safety Report 5589250-9 (Version None)
Quarter: 2008Q1

REPORT INFORMATION
  Report Type: 
  Country: None (occurrence: None)
  Receive Date: 20080114
  Receipt Date: 20080111
  Transmission Date: 20080703
  Serious: Yes (Death, Hospitalization)
  Sender: FDA-Public Use
  Company Number: PHRM2008FR00512

PATIENT
  Age: 82 Year
  Sex: Female

DRUGS (2)
  1. VOLTAREN [Suspect]
     Indication: BACK PAIN
     Dosage: 100 MG, QD
     Route: 048
     Dates: start: 20070929, end: 20071003
  2. OMEPRAZOLE [Concomitant]

REACTIONS (9)
  - ACUTE CORONARY SYNDROME [None]
  - CARDIAC DISORDER [None]
  - DUODENITIS [None]
  - GASTRIC ULCER [None]
  - GENERAL PHYSICAL HEALTH DETERIORATION [None]
  - HAEMORRHAGE [None]
  - MELAENA [None]
  - RESPIRATORY DISORDER [None]
  - SHOCK [None]
